FAERS Safety Report 10678966 (Version 1)
Quarter: 2014Q4

REPORT INFORMATION
  Report Type: Spontaneous
  Country: US (occurrence: None)
  Receive Date: 20141224
  Receipt Date: 20141224
  Transmission Date: 20150529
  Serious: Yes (Death)
  Sender: FDA-Public Use
  Company Number: None

PATIENT
  Age: 62 Year
  Sex: Female

DRUGS (1)
  1. CAPECITABINE. [Suspect]
     Active Substance: CAPECITABINE
     Indication: BREAST CANCER
     Dosage: 2 TABLETS OF 150MG TWICE DAILY ORAL
     Route: 048
     Dates: start: 20141104, end: 20141130

REACTIONS (1)
  - Death [None]

NARRATIVE: CASE EVENT DATE: 20141202
